FAERS Safety Report 6810114-4 (Version None)
Quarter: 2010Q2

REPORT INFORMATION
  Report Type: 
  Country: None (occurrence: None)
  Receive Date: 20100630
  Receipt Date: 20100618
  Transmission Date: 20101027
  Serious: Yes (Hospitalization)
  Sender: FDA-Public Use
  Company Number: DE-ROCHE-711886

PATIENT
  Sex: Female
  Weight: 73.3 kg

DRUGS (2)
  1. TOCILIZUMAB [Suspect]
     Indication: RHEUMATOID ARTHRITIS
     Route: 042
     Dates: start: 20090728, end: 20100414
  2. UNKNOWN HYPERTENSION DRUG [Concomitant]
     Indication: HYPERTENSION

REACTIONS (2)
  - HEADACHE [None]
  - SPEECH DISORDER [None]
